FAERS Safety Report 20992620 (Version 1)
Quarter: 2022Q2

REPORT INFORMATION
  Report Type: Spontaneous
  Country: PL (occurrence: PL)
  Receive Date: 20220622
  Receipt Date: 20220622
  Transmission Date: 20220721
  Serious: Yes (Death, Other)
  Sender: FDA-Public Use
  Company Number: PL-SLATE RUN PHARMACEUTICALS-22PL001156

PATIENT

DRUGS (4)
  1. AZITHROMYCIN [Suspect]
     Active Substance: AZITHROMYCIN
     Indication: Atypical pneumonia
     Dosage: UNK
  2. CEFTRIAXONE [Concomitant]
     Active Substance: CEFTRIAXONE
     Indication: Atypical pneumonia
  3. METHYLPREDNISOLONE [Concomitant]
     Active Substance: METHYLPREDNISOLONE
     Indication: Atypical pneumonia
     Dosage: UNK, 3 ONLY
     Route: 058
  4. ENOXAPARIN [Concomitant]
     Active Substance: ENOXAPARIN
     Indication: Atypical pneumonia

REACTIONS (7)
  - Multiple organ dysfunction syndrome [Fatal]
  - Lung opacity [Unknown]
  - Glomerulonephritis rapidly progressive [Unknown]
  - Cerebral ischaemia [Unknown]
  - Subarachnoid haemorrhage [Unknown]
  - Vasculitis [Unknown]
  - Off label use [Unknown]
